FAERS Safety Report 9080453 (Version 1)
Quarter: 2013Q1

REPORT INFORMATION
  Report Type: Report from Study
  Country: US (occurrence: US)
  Receive Date: 20130130
  Receipt Date: 20130130
  Transmission Date: 20140127
  Serious: No
  Sender: FDA-Public Use
  Company Number: US-ABBOTT-12P-163-0962384-00

PATIENT
  Age: 30 Year
  Sex: Female

DRUGS (9)
  1. HUMIRA 40 MG/0.8 ML PEN [Suspect]
     Indication: CROHN^S DISEASE
     Dates: start: 20111121
  2. LIALDA [Concomitant]
     Indication: PRODUCT USED FOR UNKNOWN INDICATION
  3. FOLIC ACID [Concomitant]
     Indication: PRODUCT USED FOR UNKNOWN INDICATION
     Dosage: 1MG DAILY
  4. CYMBALTA [Concomitant]
     Indication: ANXIETY
     Dosage: 60MG DAILY
  5. CYMBALTA [Concomitant]
     Indication: DEPRESSION
  6. SYNTHROID [Concomitant]
     Indication: HYPOTHYROIDISM
  7. WELLBUTRIN SR [Concomitant]
     Indication: DEPRESSION
     Dosage: 150MG DAILY
  8. TRAZODONE [Concomitant]
     Indication: INSOMNIA
     Dosage: 1-2 DAILY
  9. DILTIAZEM [Concomitant]
     Indication: HYPERTENSION

REACTIONS (11)
  - Cough [Not Recovered/Not Resolved]
  - Sinusitis [Not Recovered/Not Resolved]
  - Sinusitis [Not Recovered/Not Resolved]
  - Bronchitis [Not Recovered/Not Resolved]
  - Chest pain [Not Recovered/Not Resolved]
  - Dyspnoea [Not Recovered/Not Resolved]
  - Vaginal haemorrhage [Recovered/Resolved]
  - Menstruation irregular [Unknown]
  - Genital lesion [Not Recovered/Not Resolved]
  - Blood blister [Not Recovered/Not Resolved]
  - Pain [Recovered/Resolved]
